FAERS Safety Report 9696904 (Version 2)
Quarter: 2013Q4

REPORT INFORMATION
  Report Type: Spontaneous
  Country: US (occurrence: US)
  Receive Date: 20131119
  Receipt Date: 20131119
  Transmission Date: 20140711
  Serious: Yes (Hospitalization)
  Sender: FDA-Public Use
  Company Number: US-GILEAD-2007-0013643

PATIENT
  Sex: 0

DRUGS (11)
  1. LETAIRIS [Suspect]
     Indication: PULMONARY ARTERIAL HYPERTENSION
     Dates: start: 20070831
  2. REVATIO [Concomitant]
  3. LASIX [Concomitant]
  4. VERAPAMIL [Concomitant]
  5. WARFARIN [Concomitant]
  6. SPIRONOLACTONE [Concomitant]
  7. METOPROLOL [Concomitant]
  8. LEVOTHYROXINE [Concomitant]
  9. COLCHICINE [Concomitant]
  10. PROBENECID [Concomitant]
  11. OMEPRAZOLE [Concomitant]

REACTIONS (1)
  - Dyspnoea [Not Recovered/Not Resolved]
